FAERS Safety Report 21949842 (Version 1)
Quarter: 2023Q1

REPORT INFORMATION
  Report Type: Report from Study
  Country: NZ (occurrence: NZ)
  Receive Date: 20230203
  Receipt Date: 20230203
  Transmission Date: 20230417
  Serious: Yes (Other)
  Sender: FDA-Public Use
  Company Number: NZ-GLAXOSMITHKLINE-NZ2023GSK015284

PATIENT

DRUGS (1)
  1. NIRAPARIB [Suspect]
     Active Substance: NIRAPARIB
     Indication: Ovarian neoplasm
     Dosage: 200 MG

REACTIONS (1)
  - Malignant neoplasm progression [Unknown]
